FAERS Safety Report 8048474 (Version 5)
Quarter: 2013Q1

REPORT INFORMATION
  Report Type: Spontaneous
  Country: US (occurrence: US)
  Receive Date: 20110722
  Receipt Date: 20130327
  Transmission Date: 20140127
  Serious: Yes (Hospitalization, Other)
  Sender: FDA-Public Use
  Company Number: US-BIOGENIDEC-2011BI025794

PATIENT
  Age: 54 Year
  Sex: Female

DRUGS (1)
  1. TYSABRI [Suspect]
     Indication: MULTIPLE SCLEROSIS
     Route: 042
     Dates: start: 20100915, end: 20120910

REACTIONS (5)
  - Lung neoplasm malignant [Not Recovered/Not Resolved]
  - Lung cancer metastatic [Not Recovered/Not Resolved]
  - Fall [Recovered/Resolved]
  - Upper limb fracture [Recovered/Resolved]
  - Feeling jittery [Recovered/Resolved]
